FAERS Safety Report 11216380 (Version 2)
Quarter: 2018Q2

REPORT INFORMATION
  Report Type: Report from Study
  Country: US (occurrence: US)
  Receive Date: 20150624
  Receipt Date: 20180620
  Transmission Date: 20180711
  Serious: Yes (Death, Hospitalization, Other)
  Sender: FDA-Public Use
  Company Number: US-UNITED THERAPEUTICS-UNT-2015-007491

PATIENT
  Age: 71 Year
  Sex: Male
  Weight: 97.5 kg

DRUGS (22)
  1. ORAL TREPROSTINIL [Suspect]
     Active Substance: TREPROSTINIL
     Indication: PULMONARY ARTERIAL HYPERTENSION
     Dosage: 2.25 MG, Q8H
     Route: 048
     Dates: start: 20141015
  2. SIMVASTATIN. [Concomitant]
     Active Substance: SIMVASTATIN
     Indication: BLOOD CHOLESTEROL INCREASED
     Dosage: 10 MG TOTAL DAILY DOSE
     Route: 065
     Dates: start: 20111207, end: 20150616
  3. MENTHOL. [Concomitant]
     Active Substance: MENTHOL
     Indication: ARTHRALGIA
     Dosage: UNK
     Route: 061
     Dates: start: 20150118, end: 20150616
  4. ORAL TREPROSTINIL [Suspect]
     Active Substance: TREPROSTINIL
     Dosage: 2.25 MG TDD
     Route: 048
     Dates: start: 20150512, end: 20150515
  5. CHOLESTYRAMINE. [Concomitant]
     Active Substance: CHOLESTYRAMINE
     Indication: DIARRHOEA
     Dosage: 12 G TOTAL DAILY DOSE
     Route: 065
     Dates: start: 20150310, end: 20150616
  6. TADALAFIL [Concomitant]
     Active Substance: TADALAFIL
     Indication: PULMONARY HYPERTENSION
     Dosage: 40 MG TOTAL DAILY DOSE
     Route: 065
     Dates: start: 20120223, end: 20150615
  7. CARVEDILOL. [Concomitant]
     Active Substance: CARVEDILOL
     Indication: LEFT VENTRICULAR FAILURE
     Dosage: 6.25 MG TOTAL DAILY DOSE
     Route: 065
     Dates: start: 20111213, end: 20150616
  8. WARFARIN [Concomitant]
     Active Substance: WARFARIN
     Indication: PULMONARY EMBOLISM
     Dosage: 5 OR 2.5 MG TOTAL DAILY DOSE
     Route: 065
     Dates: start: 20120109, end: 20150616
  9. CHOLECALCIFEROL [Concomitant]
     Active Substance: CHOLECALCIFEROL
     Indication: VITAMIN SUPPLEMENTATION
     Dosage: 2000 UNITS TOTAL DAILY DOSE
     Route: 065
     Dates: start: 20120109, end: 20150616
  10. ACETAMINOPHEN. [Suspect]
     Active Substance: ACETAMINOPHEN
     Indication: PAIN
     Dosage: 650 MG, TDD PRN
     Route: 065
     Dates: start: 20120109, end: 20150116
  11. ORAL TREPROSTINIL [Suspect]
     Active Substance: TREPROSTINIL
     Dosage: 1 MG, UNK
     Route: 048
  12. RANOLAZINE. [Concomitant]
     Active Substance: RANOLAZINE
     Indication: VENTRICULAR TACHYCARDIA
     Dosage: 1000 MG TOTAL DAILY DOSE
     Route: 065
     Dates: start: 20111213, end: 20150616
  13. INSULINE GLARGINE [Concomitant]
     Active Substance: INSULIN GLARGINE
     Indication: DIABETES MELLITUS
     Dosage: 12 UNITS TOTAL DAILY DOSE
     Route: 065
     Dates: start: 20111213, end: 20150616
  14. ASPIRIN                            /00002701/ [Concomitant]
     Active Substance: ASPIRIN
     Indication: PROPHYLAXIS
     Dosage: 81 MG TDD
     Route: 065
     Dates: start: 20111207, end: 20150616
  15. VITAMIN B [Concomitant]
     Active Substance: VITAMIN B
     Indication: VITAMIN SUPPLEMENTATION
     Dosage: 0.8 MG TOTAL DAILY DOSE
     Route: 065
     Dates: start: 20150205, end: 20150616
  16. ORAL TREPROSTINIL [Suspect]
     Active Substance: TREPROSTINIL
     Dosage: UNK
     Route: 048
  17. ADCIRCA [Concomitant]
     Active Substance: TADALAFIL
     Indication: PRODUCT USED FOR UNKNOWN INDICATION
     Dosage: UNK
     Route: 065
  18. SIMVASTATIN. [Concomitant]
     Active Substance: SIMVASTATIN
     Indication: ARTERIOSCLEROSIS
  19. CALCIUM ACETATE. [Concomitant]
     Active Substance: CALCIUM ACETATE
     Indication: PRODUCT USED FOR UNKNOWN INDICATION
     Dosage: 4002 MG TOTAL DAILY DOSE
     Route: 065
     Dates: start: 20150205, end: 20150616
  20. ALLOPURINOL. [Concomitant]
     Active Substance: ALLOPURINOL
     Indication: GOUT
     Dosage: 100 MG TOTAL DAILY DOSE
     Route: 065
     Dates: start: 20120426, end: 20150616
  21. ORAL TREPROSTINIL [Suspect]
     Active Substance: TREPROSTINIL
     Dosage: 2.5 MG, UNK
     Route: 048
  22. DOCUSATE CALCIUM. [Concomitant]
     Active Substance: DOCUSATE CALCIUM
     Indication: CONSTIPATION
     Dosage: 240 MG TOTAL DAILY DOSE
     Route: 065
     Dates: start: 20150417, end: 20150522

REACTIONS (3)
  - Bacteraemia [Fatal]
  - Ischaemic cardiomyopathy [Fatal]
  - Acute myocardial infarction [Fatal]

NARRATIVE: CASE EVENT DATE: 20150522
